FAERS Safety Report 7543334-4 (Version None)
Quarter: 2011Q2

REPORT INFORMATION
  Report Type: 
  Country: None (occurrence: None)
  Receive Date: 20110524
  Receipt Date: 20110216
  Transmission Date: 20111010
  Serious: No
  Sender: FDA-Public Use
  Company Number: 023473

PATIENT
  Sex: Female

DRUGS (1)
  1. CIMZIA [Suspect]
     Indication: CROHN'S DISEASE
     Dosage: (SUBCUTANEOUS)
     Route: 058
     Dates: start: 20100922

REACTIONS (4)
  - DRUG INEFFECTIVE [None]
  - CROHN'S DISEASE [None]
  - FISTULA [None]
  - DRUG EFFECT DECREASED [None]
